FAERS Safety Report 6250449-X (Version None)
Quarter: 2009Q2

REPORT INFORMATION
  Report Type: 
  Country: None (occurrence: None)
  Receive Date: 20090630
  Receipt Date: 20090626
  Transmission Date: 20091009
  Serious: Yes (Life-Threatening, Hospitalization, Other)
  Sender: FDA-Public Use
  Company Number: PHHY2008JP07365

PATIENT
  Sex: Female
  Weight: 65 kg

DRUGS (8)
  1. GLEEVEC [Suspect]
     Indication: CHRONIC MYELOID LEUKAEMIA
     Dosage: 400 MG
     Route: 048
     Dates: start: 20080208, end: 20080425
  2. ONON [Suspect]
     Indication: ASTHMA
     Dosage: 450 MG
     Route: 048
     Dates: start: 20080104, end: 20080425
  3. THEO-DUR [Concomitant]
     Indication: ASTHMA
     Dosage: 400 MG
     Route: 048
     Dates: start: 20080104
  4. HOKUNALIN [Concomitant]
     Indication: ASTHMA
     Dosage: 2 MG
     Route: 062
     Dates: start: 20080104
  5. PREDNISOLONE [Concomitant]
     Indication: ASTHMA
     Dosage: 30 MG
     Route: 048
     Dates: start: 20080104
  6. FLUTIDE [Concomitant]
     Indication: ASTHMA
     Dosage: UNK
     Dates: start: 20071211
  7. GASTER D [Concomitant]
     Dosage: 40 MG
     Route: 048
     Dates: start: 20071215, end: 20080519
  8. PROTECADIN [Concomitant]
     Dosage: 20 MG
     Route: 048
     Dates: start: 20080509

REACTIONS (7)
  - ASTHMA [None]
  - BACTERIA URINE IDENTIFIED [None]
  - C-REACTIVE PROTEIN INCREASED [None]
  - INTERSTITIAL LUNG DISEASE [None]
  - LEUKOCYTOSIS [None]
  - PYREXIA [None]
  - WHEEZING [None]
